FAERS Safety Report 7533943-0 (Version None)
Quarter: 2011Q2

REPORT INFORMATION
  Report Type: 
  Country: None (occurrence: None)
  Receive Date: 20110608
  Receipt Date: 20060713
  Transmission Date: 20111010
  Serious: Yes (Death)
  Sender: FDA-Public Use
  Company Number: PHMT2006CA01015

PATIENT
  Sex: Male
  Weight: 103.85 kg

DRUGS (3)
  1. CLONAZEPAM [Concomitant]
  2. IMIPRAMINE [Concomitant]
  3. CLOZAPINE [Suspect]
     Indication: SCHIZOPHRENIA
     Dosage: 450 MG, QHS
     Route: 048
     Dates: start: 20020104, end: 20060303

REACTIONS (1)
  - DEATH [None]
